FAERS Safety Report 20635572 (Version 1)
Quarter: 2022Q1

REPORT INFORMATION
  Report Type: Spontaneous
  Country: US (occurrence: US)
  Receive Date: 20220325
  Receipt Date: 20220325
  Transmission Date: 20220423
  Serious: No
  Sender: FDA-Public Use
  Company Number: US-GW PHARMA-202203USGW01441

PATIENT
  Sex: Female

DRUGS (3)
  1. EPIDIOLEX [Suspect]
     Active Substance: CANNABIDIOL
     Indication: Partial seizures
     Dosage: 20 MILLIGRAM, QD (IN THE EVENING)
     Dates: start: 202202, end: 2022
  2. EPIDIOLEX [Suspect]
     Active Substance: CANNABIDIOL
     Indication: Epilepsy
     Dosage: 20 MILLIGRAM, BID
     Dates: start: 2022, end: 2022
  3. EPIDIOLEX [Suspect]
     Active Substance: CANNABIDIOL
     Indication: Simple partial seizures
     Dosage: 60 MILLIGRAM, QD (20 MILLIGRAM IN THE MORNING AND 40 MILLIGRAM IN THE EVENING FOR 1 WEEK AND THERE A
     Dates: start: 2022

REACTIONS (4)
  - Sleep disorder [Unknown]
  - Agitation [Unknown]
  - Product use in unapproved indication [Unknown]
  - Off label use [Unknown]

NARRATIVE: CASE EVENT DATE: 20220101
